FAERS Safety Report 7235223-X (Version None)
Quarter: 2011Q1

REPORT INFORMATION
  Report Type: 
  Country: None (occurrence: None)
  Receive Date: 20110111
  Receipt Date: 20110104
  Transmission Date: 20110831
  Serious: Yes (Other)
  Sender: FDA-Public Use
  Company Number: 2010SP062960

PATIENT
  Sex: Female

DRUGS (1)
  1. IMPLANON [Suspect]
     Indication: CONTRACEPTION
     Dates: start: 20070101, end: 20101116

REACTIONS (5)
  - HYPOAESTHESIA [None]
  - PROCEDURAL COMPLICATION [None]
  - PARAESTHESIA [None]
  - PAIN IN EXTREMITY [None]
  - NERVE INJURY [None]
